FAERS Safety Report 11112153 (Version 1)
Quarter: 2015Q2

REPORT INFORMATION
  Report Type: Spontaneous
  Country: GB (occurrence: GB)
  Receive Date: 20150514
  Receipt Date: 20150514
  Transmission Date: 20150821
  Serious: Yes (Other)
  Sender: FDA-Public Use
  Company Number: GB-ACTAVIS-2015-09799

PATIENT
  Age: 67 Year
  Sex: Female
  Weight: 93.3 kg

DRUGS (10)
  1. AMOXICILLIN. [Concomitant]
     Active Substance: AMOXICILLIN
     Indication: MENINGITIS LISTERIA
     Dosage: 2 G, QID
     Route: 042
     Dates: start: 20150106, end: 20150107
  2. ACYCLOVIR (UNKNOWN) [Suspect]
     Active Substance: ACYCLOVIR
     Dosage: 930 MG, DAILY
     Route: 042
     Dates: start: 20150110, end: 20150110
  3. ACYCLOVIR (UNKNOWN) [Suspect]
     Active Substance: ACYCLOVIR
     Indication: MENINGITIS VIRAL
     Dosage: 930 MG, QID
     Route: 042
     Dates: start: 20150106, end: 20150109
  4. ACYCLOVIR (UNKNOWN) [Suspect]
     Active Substance: ACYCLOVIR
     Dosage: 330 MG, TID
     Route: 042
     Dates: start: 20150115, end: 20150129
  5. MIRTAZAPINE. [Concomitant]
     Active Substance: MIRTAZAPINE
     Indication: DEPRESSION
     Dosage: 30 MG, QHS
     Route: 048
     Dates: start: 20140102
  6. ACYCLOVIR (UNKNOWN) [Suspect]
     Active Substance: ACYCLOVIR
     Dosage: 500 MG, TID
     Route: 042
     Dates: start: 20150105, end: 20150106
  7. ADALAT CC [Concomitant]
     Active Substance: NIFEDIPINE
     Indication: HYPERTENSION
     Dosage: 60 MG, DAILY
     Route: 048
     Dates: start: 20141208
  8. ACYCLOVIR (UNKNOWN) [Suspect]
     Active Substance: ACYCLOVIR
     Dosage: 465 MG, DAILY
     Route: 042
     Dates: start: 20150111, end: 20150112
  9. PARACETAMOL [Concomitant]
     Active Substance: ACETAMINOPHEN
     Indication: PAIN
     Dosage: 1 G, QID
     Route: 065
     Dates: start: 20150105, end: 20150112
  10. CEFOTAXIME [Concomitant]
     Active Substance: CEFOTAXIME\CEFOTAXIME SODIUM
     Indication: MENINGITIS BACTERIAL
     Dosage: 2 G, QID
     Route: 042
     Dates: start: 20150106, end: 20150107

REACTIONS (2)
  - Tubulointerstitial nephritis [Recovered/Resolved]
  - Renal failure [Recovered/Resolved]

NARRATIVE: CASE EVENT DATE: 20150109
